FAERS Safety Report 5753378-0 (Version None)
Quarter: 2008Q2

REPORT INFORMATION
  Report Type: 
  Country: None (occurrence: None)
  Receive Date: 20080530
  Receipt Date: 20080520
  Transmission Date: 20081010
  Serious: Yes (Hospitalization)
  Sender: FDA-Public Use
  Company Number: ES-ELI_LILLY_AND_COMPANY-ES200805004684

PATIENT
  Age: 77 Year
  Sex: Female

DRUGS (7)
  1. FORTEO [Suspect]
     Indication: OSTEOPOROSIS
     Dosage: 20 UG, UNKNOWN
     Route: 058
     Dates: start: 20070201, end: 20080501
  2. ADOLONTA [Concomitant]
     Dosage: UNK, UNKNOWN
     Route: 065
  3. FUROSEMIDE [Concomitant]
     Dosage: UNK, UNKNOWN
     Route: 065
  4. PANTOPRAZOLE [Concomitant]
     Dosage: UNK, UNKNOWN
     Route: 065
  5. NATECAL [Concomitant]
     Dosage: UNK, UNKNOWN
     Route: 065
  6. NOLOTIL [Concomitant]
     Dosage: UNK, UNKNOWN
     Route: 065
  7. METFORMINE [Concomitant]
     Dosage: UNK, UNKNOWN
     Route: 065

REACTIONS (2)
  - PAIN [None]
  - SPINAL DISORDER [None]
